FAERS Safety Report 14772991 (Version 1)
Quarter: 2018Q2

REPORT INFORMATION
  Report Type: Spontaneous
  Country: US (occurrence: US)
  Receive Date: 20180418
  Receipt Date: 20180418
  Transmission Date: 20180711
  Serious: No
  Sender: FDA-Public Use
  Company Number: US-TEVA-764708ACC

PATIENT
  Sex: Female

DRUGS (5)
  1. BUPROPION XL [Concomitant]
     Active Substance: BUPROPION
  2. FLUOXETINE [Concomitant]
     Active Substance: FLUOXETINE HYDROCHLORIDE
  3. BUPROPION XL [Concomitant]
     Active Substance: BUPROPION
  4. TOPIRAMATE. [Suspect]
     Active Substance: TOPIRAMATE
     Indication: MIGRAINE PROPHYLAXIS
     Dosage: 100 MILLIGRAM DAILY;
     Route: 048
  5. CLONAZEPAM. [Concomitant]
     Active Substance: CLONAZEPAM

REACTIONS (2)
  - Memory impairment [Unknown]
  - Drug ineffective [Unknown]
